FAERS Safety Report 11607041 (Version 1)
Quarter: 2015Q4

REPORT INFORMATION
  Report Type: Spontaneous
  Country: RU (occurrence: RU)
  Receive Date: 20151007
  Receipt Date: 20151007
  Transmission Date: 20160304
  Serious: Yes (Other)
  Sender: FDA-Public Use
  Company Number: PHHY2015RU120858

PATIENT
  Age: 83 Year

DRUGS (1)
  1. WARFARIN [Suspect]
     Active Substance: WARFARIN
     Indication: CARDIOVASCULAR DISORDER
     Route: 065

REACTIONS (4)
  - Haemorrhagic disorder [Unknown]
  - Pulmonary oedema [Unknown]
  - Overdose [Unknown]
  - Acute respiratory failure [Unknown]
